FAERS Safety Report 6126782-9 (Version None)
Quarter: 2009Q1

REPORT INFORMATION
  Report Type: 
  Country: None (occurrence: None)
  Receive Date: 20090320
  Receipt Date: 20090310
  Transmission Date: 20090719
  Serious: Yes (Hospitalization)
  Sender: FDA-Public Use
  Company Number: GB-PFIZER INC-2009183228

PATIENT

DRUGS (2)
  1. CHAMPIX [Suspect]
     Indication: SMOKING CESSATION THERAPY
     Route: 048
     Dates: start: 20081106, end: 20090131
  2. OMEPRAZOLE [Concomitant]

REACTIONS (3)
  - CHORIORETINOPATHY [None]
  - HEADACHE [None]
  - VISUAL ACUITY REDUCED [None]
